FAERS Safety Report 14204647 (Version 4)
Quarter: 2018Q3

REPORT INFORMATION
  Report Type: Spontaneous
  Country: US (occurrence: US)
  Receive Date: 20171120
  Receipt Date: 20180716
  Transmission Date: 20181010
  Serious: Yes (Other)
  Sender: FDA-Public Use
  Company Number: US-PFIZER INC-2017499489

PATIENT
  Age: 60 Year
  Sex: Female
  Weight: 89.81 kg

DRUGS (1)
  1. XELJANZ [Suspect]
     Active Substance: TOFACITINIB CITRATE
     Indication: CARDIOVASCULAR DISORDER
     Dosage: 10 MG, 2X/DAY (TOOK 2 PILLS IN THE MORNING, AND 2 AT NIGHT)
     Dates: start: 2016, end: 2017

REACTIONS (6)
  - Asthenia [Unknown]
  - Neuropathy peripheral [Unknown]
  - Weight increased [Unknown]
  - Overdose [Unknown]
  - Breast cancer female [Unknown]
  - Product use in unapproved indication [Unknown]

NARRATIVE: CASE EVENT DATE: 2016
